FAERS Safety Report 23033762 (Version 4)
Quarter: 2024Q3

REPORT INFORMATION
  Report Type: Spontaneous
  Country: CA (occurrence: CA)
  Receive Date: 20231005
  Receipt Date: 20240802
  Transmission Date: 20241016
  Serious: Yes (Other)
  Sender: VERTEX
  Company Number: CA-VERTEX PHARMACEUTICALS-2022-006672

PATIENT
  Age: 28 Year
  Sex: Female
  Weight: 62 kg

DRUGS (14)
  1. TRIKAFTA [Suspect]
     Active Substance: ELEXACAFTOR\IVACAFTOR\TEZACAFTOR
     Indication: Cystic fibrosis
     Dosage: BID
     Route: 048
     Dates: start: 202112, end: 20230825
  2. TRIKAFTA [Suspect]
     Active Substance: ELEXACAFTOR\IVACAFTOR\TEZACAFTOR
     Dosage: FREQ UNK
     Route: 048
     Dates: start: 20230908
  3. TRIKAFTA [Suspect]
     Active Substance: ELEXACAFTOR\IVACAFTOR\TEZACAFTOR
     Dosage: 2 EVERY 1 DAY
     Route: 048
  4. FLUTICASONE FUROATE [Concomitant]
     Active Substance: FLUTICASONE FUROATE
     Dosage: SPRAY METERED DOSE
  5. AZITHROMYCIN [Concomitant]
     Active Substance: AZITHROMYCIN
  6. CAYSTON [Concomitant]
     Active Substance: AZTREONAM
  7. CREON [Concomitant]
     Active Substance: PANCRELIPASE AMYLASE\PANCRELIPASE LIPASE\PANCRELIPASE PROTEASE
     Dosage: CAPSULES
  8. FERAMAX [Concomitant]
     Active Substance: IRON\POLYSACCHARIDES
  9. INSULIN NOS [Concomitant]
     Active Substance: INSULIN NOS
  10. SYMBICORT [Concomitant]
     Active Substance: BUDESONIDE\FORMOTEROL FUMARATE DIHYDRATE
     Dosage: POWDER
  11. URSODIOL [Concomitant]
     Active Substance: URSODIOL
  12. VENTOLIN [Concomitant]
     Active Substance: ALBUTEROL SULFATE
     Dosage: METERED DOSE-AEROSOL
  13. VITAMIN D [Concomitant]
     Active Substance: VITAMIN D NOS
  14. VITAMIN E [Concomitant]
     Active Substance: .ALPHA.-TOCOPHEROL

REACTIONS (4)
  - Suicidal ideation [Unknown]
  - Anxiety [Recovering/Resolving]
  - Depression [Recovering/Resolving]
  - Personality disorder [Not Recovered/Not Resolved]

NARRATIVE: CASE EVENT DATE: 20211201
